FAERS Safety Report 5915802-X (Version None)
Quarter: 2008Q4

REPORT INFORMATION
  Report Type: 
  Country: None (occurrence: None)
  Receive Date: 20081010
  Receipt Date: 20080930
  Transmission Date: 20090506
  Serious: Yes (Hospitalization, Other)
  Sender: FDA-Public Use
  Company Number: JP-PFIZER INC-2008074033

PATIENT
  Sex: Male
  Weight: 57 kg

DRUGS (6)
  1. ZYVOX [Suspect]
     Indication: POST PROCEDURAL INFECTION
     Route: 048
     Dates: start: 20080508, end: 20080604
  2. ZYVOX [Suspect]
     Route: 048
     Dates: start: 20080611, end: 20080708
  3. ZYVOX [Suspect]
     Route: 048
     Dates: start: 20080805, end: 20080821
  4. RISPERDAL [Concomitant]
     Dosage: DAILY DOSE:1ML
     Route: 048
     Dates: start: 20080812, end: 20080908
  5. SEROQUEL [Concomitant]
     Dosage: DAILY DOSE:100MG
     Route: 048
     Dates: start: 20080812, end: 20080908
  6. ALEVIATIN [Concomitant]
     Route: 048

REACTIONS (4)
  - DELUSION [None]
  - HALLUCINATION [None]
  - HYPERKINESIA [None]
  - VISUAL IMPAIRMENT [None]
